FAERS Safety Report 17342467 (Version 1)
Quarter: 2020Q1

REPORT INFORMATION
  Report Type: Spontaneous
  Country: US (occurrence: US)
  Receive Date: 20200129
  Receipt Date: 20200129
  Transmission Date: 20200409
  Serious: No
  Sender: FDA-Public Use
  Company Number: US-ALLERGAN-1906121US

PATIENT
  Age: 49 Year
  Sex: Male

DRUGS (1)
  1. BOTOX COSMETIC [Suspect]
     Active Substance: ONABOTULINUMTOXINA
     Indication: SKIN WRINKLING
     Dosage: ABOUT 50 UNITS, SINGLE
     Route: 030
     Dates: start: 201902, end: 201902

REACTIONS (1)
  - Injection site urticaria [Recovered/Resolved]
